FAERS Safety Report 9672363 (Version 2)
Quarter: 2013Q4

REPORT INFORMATION
  Report Type: Report from Study
  Country: US (occurrence: US)
  Receive Date: 20131106
  Receipt Date: 20131106
  Transmission Date: 20140711
  Serious: Yes (Hospitalization)
  Sender: FDA-Public Use
  Company Number: PHHO2013US013746

PATIENT
  Age: 67 Year
  Sex: Female
  Weight: 93.42 kg

DRUGS (19)
  1. DEXAMETHASONE [Suspect]
     Dosage: 20 MG, QW
     Route: 042
     Dates: start: 20131015, end: 20131015
  2. BLINDED BKM120 [Suspect]
     Indication: BREAST CANCER
     Dosage: 100 MG, DAILY
     Route: 048
     Dates: start: 20131015, end: 20131018
  3. BLINDED NO TREATMENT RECEIVED [Suspect]
     Indication: BREAST CANCER
     Dosage: 100 MG, DAILY
     Route: 048
     Dates: start: 20131015, end: 20131018
  4. BLINDED PLACEBO [Suspect]
     Indication: BREAST CANCER
     Dosage: 100 MG, DAILY
     Route: 048
     Dates: start: 20131015, end: 20131018
  5. BLINDED BKM120 [Suspect]
     Dosage: 100 MG, DAILY
     Route: 048
     Dates: start: 20131029
  6. BLINDED NO TREATMENT RECEIVED [Suspect]
     Dosage: 100 MG, DAILY
     Route: 048
     Dates: start: 20131029
  7. BLINDED PLACEBO [Suspect]
     Dosage: 100 MG, DAILY
     Route: 048
     Dates: start: 20131029
  8. COMPARATOR PACLITAXEL [Suspect]
     Indication: BREAST CANCER
     Dosage: 80 MG/M2, QW
     Route: 042
     Dates: start: 20131015, end: 20131015
  9. COMPARATOR PACLITAXEL [Suspect]
     Dosage: 80 MG/M2, QW
     Route: 042
     Dates: start: 20131029
  10. LIPITOR [Concomitant]
     Indication: HYPERCHOLESTEROLAEMIA
     Dosage: 20 MG, QD
     Route: 048
  11. LISINOPRIL AND HYDROCHLOROTHIAZIDE [Concomitant]
     Indication: HYPERTENSION
     Dosage: 25/20 MG DAILY
     Route: 048
  12. MOBIC [Concomitant]
     Indication: ARTHRITIS
     Dosage: 7.5 MG, QD
     Route: 048
  13. PRILOSEC [Concomitant]
     Indication: GASTROOESOPHAGEAL REFLUX DISEASE
     Dosage: 20 MG, QD
     Route: 048
  14. GEMFIBROZIL [Concomitant]
     Indication: HYPERCHOLESTEROLAEMIA
     Dosage: 600 MG, BID
     Route: 048
  15. ASPIRIN [Concomitant]
     Indication: PROPHYLAXIS
     Dosage: 325 MG, QD
     Route: 048
     Dates: start: 20131009
  16. OXYCODONE [Concomitant]
     Indication: PAIN
     Dosage: 10 MG, QD
     Route: 048
     Dates: start: 20130911
  17. COMPAZINE [Concomitant]
     Indication: PROPHYLAXIS OF NAUSEA AND VOMITING
     Dosage: 10 MG, PRN, Q6H
     Route: 048
     Dates: start: 20131015
  18. COLACE [Concomitant]
     Indication: CONSTIPATION PROPHYLAXIS
     Dosage: 200 MG, QD
     Route: 048
     Dates: start: 20131009
  19. SENNA-S [Concomitant]
     Indication: CONSTIPATION PROPHYLAXIS
     Dosage: 1 DF, QD
     Route: 048
     Dates: start: 20131009

REACTIONS (4)
  - Abdominal pain [Recovered/Resolved]
  - Nausea [Recovered/Resolved]
  - Vomiting [Recovered/Resolved]
  - Diarrhoea [Recovered/Resolved]
